FAERS Safety Report 14411830 (Version 1)
Quarter: 2018Q1

REPORT INFORMATION
  Report Type: Spontaneous
  Country: BR (occurrence: BR)
  Receive Date: 20180119
  Receipt Date: 20180119
  Transmission Date: 20180509
  Serious: Yes (Other)
  Sender: FDA-Public Use
  Company Number: BR-009507513-1801BRA007089

PATIENT
  Sex: Female
  Weight: 1.4 kg

DRUGS (1)
  1. NUVARING [Suspect]
     Active Substance: ETHINYL ESTRADIOL\ETONOGESTREL
     Dosage: UNK
     Route: 064

REACTIONS (4)
  - Premature baby [Unknown]
  - Foetal exposure during pregnancy [Unknown]
  - Small for dates baby [Unknown]
  - Low birth weight baby [Unknown]

NARRATIVE: CASE EVENT DATE: 20171030
